FAERS Safety Report 7775036-3 (Version None)
Quarter: 2011Q3

REPORT INFORMATION
  Report Type: 
  Country: None (occurrence: None)
  Receive Date: 20110923
  Receipt Date: 20110912
  Transmission Date: 20111222
  Serious: Yes (Other)
  Sender: FDA-Public Use
  Company Number: US-ELI_LILLY_AND_COMPANY-US201109003638

PATIENT
  Sex: Female

DRUGS (3)
  1. CYMBALTA [Suspect]
     Dosage: 60 MG, QD
  2. CYMBALTA [Suspect]
     Indication: DEPRESSION
     Dosage: 30 MG, QD
     Dates: start: 20090901
  3. CYMBALTA [Suspect]
     Dosage: 30 MG, QD

REACTIONS (11)
  - SUICIDAL IDEATION [None]
  - VERTIGO [None]
  - NAUSEA [None]
  - ANGER [None]
  - DRUG WITHDRAWAL SYNDROME [None]
  - AGITATION [None]
  - CRYING [None]
  - DIZZINESS [None]
  - NIGHT SWEATS [None]
  - INSOMNIA [None]
  - HEART RATE INCREASED [None]
